FAERS Safety Report 18615249 (Version 2)
Quarter: 2020Q4

REPORT INFORMATION
  Report Type: Spontaneous
  Country: US (occurrence: US)
  Receive Date: 20201214
  Receipt Date: 20201223
  Transmission Date: 20210114
  Serious: Yes (Other)
  Sender: FDA-Public Use
  Company Number: US-AGIOS-2012US02324

PATIENT

DRUGS (15)
  1. TIBSOVO [Suspect]
     Active Substance: IVOSIDENIB
     Indication: ACUTE MYELOID LEUKAEMIA RECURRENT
     Dosage: 250 MILLIGRAM, 2 TABLETS (500 MG) DAILY
     Route: 048
     Dates: start: 20200824, end: 20200908
  2. TIBSOVO [Suspect]
     Active Substance: IVOSIDENIB
     Dosage: 250 MILLIGRAM, 2 TABLETS (500 MG) DAILY
     Route: 048
     Dates: start: 20200910, end: 20201120
  3. CALCIUM CARBONATE. [Concomitant]
     Active Substance: CALCIUM CARBONATE
     Indication: PRODUCT USED FOR UNKNOWN INDICATION
  4. DOXATAN [Concomitant]
     Active Substance: DOXAZOSIN MESYLATE
  5. DOXEPIN [Concomitant]
     Active Substance: DOXEPIN
  6. METOPROLOL. [Concomitant]
     Active Substance: METOPROLOL
     Indication: PRODUCT USED FOR UNKNOWN INDICATION
  7. VENLAFAXINE [Concomitant]
     Active Substance: VENLAFAXINE HYDROCHLORIDE
     Indication: PRODUCT USED FOR UNKNOWN INDICATION
  8. MELATONIN [Concomitant]
     Active Substance: MELATONIN
     Indication: PRODUCT USED FOR UNKNOWN INDICATION
  9. IMITREX [Concomitant]
     Active Substance: SUMATRIPTAN SUCCINATE
     Indication: PRODUCT USED FOR UNKNOWN INDICATION
  10. EMLA [Concomitant]
     Active Substance: LIDOCAINE\PRILOCAINE
     Indication: PRODUCT USED FOR UNKNOWN INDICATION
  11. ONDANSETRON [Concomitant]
     Active Substance: ONDANSETRON
     Indication: PRODUCT USED FOR UNKNOWN INDICATION
  12. WARFARIN                           /00014802/ [Concomitant]
     Active Substance: WARFARIN
     Indication: PRODUCT USED FOR UNKNOWN INDICATION
  13. AMBIEN [Concomitant]
     Active Substance: ZOLPIDEM TARTRATE
     Indication: PRODUCT USED FOR UNKNOWN INDICATION
  14. AMLODIPINE [Concomitant]
     Active Substance: AMLODIPINE BESYLATE
     Indication: PRODUCT USED FOR UNKNOWN INDICATION
     Dosage: UNK
  15. MULTIVITAMIN                       /00097801/ [Concomitant]
     Active Substance: VITAMINS
     Indication: PRODUCT USED FOR UNKNOWN INDICATION

REACTIONS (7)
  - Biopsy bone marrow abnormal [Unknown]
  - Pancytopenia [Not Recovered/Not Resolved]
  - Electrocardiogram QT prolonged [Recovered/Resolved]
  - Neutrophil count decreased [Unknown]
  - Haemoglobin decreased [Unknown]
  - Muscular weakness [Recovered/Resolved]
  - Platelet count decreased [Not Recovered/Not Resolved]

NARRATIVE: CASE EVENT DATE: 20200908
